FAERS Safety Report 5812328-9 (Version None)
Quarter: 2008Q3

REPORT INFORMATION
  Report Type: 
  Country: None (occurrence: None)
  Receive Date: 20080714
  Receipt Date: 20080702
  Transmission Date: 20090109
  Serious: Yes (Death, Hospitalization)
  Sender: FDA-Public Use
  Company Number: 2008AL007878

PATIENT
  Age: 77 Year
  Sex: Female

DRUGS (4)
  1. DIGOXIN [Suspect]
     Indication: CARDIAC FLUTTER
     Dosage: 0.25MG, DAILY, PO
     Route: 048
  2. POTASSIUM CHLORIDE [Concomitant]
  3. COUMADIN [Concomitant]
  4. DIABETES PILL [Concomitant]

REACTIONS (7)
  - CARDIAC DISORDER [None]
  - CARDIAC FAILURE [None]
  - CEREBROVASCULAR ACCIDENT [None]
  - FEELING ABNORMAL [None]
  - MOVEMENT DISORDER [None]
  - TRANSIENT ISCHAEMIC ATTACK [None]
  - URINARY INCONTINENCE [None]
